FAERS Safety Report 24232878 (Version 1)
Quarter: 2024Q3

REPORT INFORMATION
  Report Type: Spontaneous
  Country: US (occurrence: None)
  Receive Date: 20240820
  Receipt Date: 20240820
  Transmission Date: 20241017
  Serious: Yes (Death)
  Sender: Public
  Company Number: None

PATIENT
  Age: 62 Year
  Sex: Male
  Weight: 70.4 kg

DRUGS (12)
  1. INLYTA [Suspect]
     Active Substance: AXITINIB
     Indication: Neoplasm malignant
     Dosage: FREQUENCY : TWICE A DAY;?
     Route: 048
     Dates: start: 20240413, end: 20240810
  2. AMLODIPINE BESYLATE [Concomitant]
     Active Substance: AMLODIPINE BESYLATE
  3. Levothryoxine 150mcg Tablets [Concomitant]
  4. MIRTAZAPINE [Concomitant]
     Active Substance: MIRTAZAPINE
  5. Olanzapine 7.5mg Tablets [Concomitant]
  6. Ondansetron ODT 8mg Tablets [Concomitant]
  7. Oxycodone 10mg Immediate Release Tablets [Concomitant]
  8. Phospha 250 Neutral Tablets [Concomitant]
  9. Prochlorperazine 10mg Tablets [Concomitant]
  10. Ketorolac 10mg Tablets [Concomitant]
  11. GABAPENTIN [Concomitant]
     Active Substance: GABAPENTIN
  12. Docusate 100mg Capsules [Concomitant]

REACTIONS (1)
  - Death [None]

NARRATIVE: CASE EVENT DATE: 20240810
